FAERS Safety Report 9922670 (Version 2)
Quarter: 2014Q1

REPORT INFORMATION
  Report Type: Spontaneous
  Country: IL (occurrence: IL)
  Receive Date: 20140225
  Receipt Date: 20140225
  Transmission Date: 20141002
  Serious: Yes (Hospitalization)
  Sender: FDA-Public Use
  Company Number: IL-ABBVIE-12P-082-1014123-00

PATIENT
  Age: 27 Year
  Sex: Female

DRUGS (3)
  1. HUMIRA [Suspect]
     Indication: CROHN^S DISEASE
     Route: 058
     Dates: start: 20120315
  2. IMURAN [Concomitant]
     Indication: CROHN^S DISEASE
  3. ANTIBIOTICS [Concomitant]
     Indication: CROHN^S DISEASE

REACTIONS (3)
  - Intestinal resection [Unknown]
  - Injection site pain [Unknown]
  - Drug ineffective [Unknown]
